FAERS Safety Report 8041823-X (Version None)
Quarter: 2012Q1

REPORT INFORMATION
  Report Type: 
  Country: None (occurrence: None)
  Receive Date: 20120112
  Receipt Date: 20120103
  Transmission Date: 20120608
  Serious: Yes (Hospitalization, Other)
  Sender: FDA-Public Use
  Company Number: US-PURDUE-USA-2011-0071088

PATIENT
  Sex: Male

DRUGS (2)
  1. OXYCONTIN [Suspect]
     Indication: PAIN
     Dosage: 80 MG, 5/DAY
     Dates: end: 20111001
  2. XANAX [Suspect]
     Indication: PRODUCT USED FOR UNKNOWN INDICATION

REACTIONS (10)
  - ARTHRALGIA [None]
  - DRUG WITHDRAWAL SYNDROME [None]
  - NEGATIVE THOUGHTS [None]
  - MENTAL IMPAIRMENT [None]
  - PSYCHOMOTOR HYPERACTIVITY [None]
  - PRODUCT QUALITY ISSUE [None]
  - EUPHORIC MOOD [None]
  - INTENTIONAL DRUG MISUSE [None]
  - SUICIDE ATTEMPT [None]
  - DRUG DEPENDENCE [None]
